FAERS Safety Report 17063300 (Version 1)
Quarter: 2019Q4

REPORT INFORMATION
  Report Type: Spontaneous
  Country: US (occurrence: US)
  Receive Date: 20191122
  Receipt Date: 20191122
  Transmission Date: 20200122
  Serious: Yes (Hospitalization, Other)
  Sender: FDA-Public Use
  Company Number: US-MICRO LABS LIMITED-ML2019-03163

PATIENT
  Age: 12 Year
  Sex: Female

DRUGS (1)
  1. DIPHENHYDRAMINE HYDROCHLORIDE. [Suspect]
     Active Substance: DIPHENHYDRAMINE HYDROCHLORIDE
     Dosage: 7500MG (147MG/KG) OF DIPHENHYDRAMINE
     Route: 048

REACTIONS (4)
  - Cardiac dysfunction [Unknown]
  - Seizure [Unknown]
  - Overdose [Unknown]
  - Anticholinergic syndrome [Unknown]
